FAERS Safety Report 6715366-7 (Version None)
Quarter: 2010Q2

REPORT INFORMATION
  Report Type: 
  Country: None (occurrence: None)
  Receive Date: 20100507
  Receipt Date: 20100507
  Transmission Date: 20101027
  Serious: Yes (Life-Threatening, Other)
  Sender: FDA-Public Use
  Company Number: None

PATIENT
  Age: 2 Year
  Sex: Male
  Weight: 14.5151 kg

DRUGS (2)
  1. CHILDREN'S TYLENOL [Suspect]
     Indication: PYREXIA
     Dosage: 1 TEASPOON 4 HOURS PO
     Route: 048
     Dates: start: 20100207, end: 20100210
  2. CHILDREN'S MOTRIN [Suspect]
     Indication: PYREXIA
     Dosage: 1 TEASPOON 6-8 HOURS PO
     Route: 048
     Dates: start: 20100206, end: 20100208

REACTIONS (1)
  - DRUG HYPERSENSITIVITY [None]
